FAERS Safety Report 20130795 (Version 3)
Quarter: 2021Q4

REPORT INFORMATION
  Report Type: Spontaneous
  Country: IT (occurrence: IT)
  Receive Date: 20211130
  Receipt Date: 20211229
  Transmission Date: 20220303
  Serious: Yes (Other)
  Sender: FDA-Public Use
  Company Number: IT-NOVARTISPH-NVSC2021IT207921

PATIENT
  Age: 83 Year
  Sex: Male

DRUGS (3)
  1. BEOVU [Suspect]
     Active Substance: BROLUCIZUMAB-DBLL
     Indication: Neovascular age-related macular degeneration
     Dosage: 120 MG/ML, QMO, (RIGHT EYE)
     Route: 031
     Dates: start: 20210617
  2. BEOVU [Suspect]
     Active Substance: BROLUCIZUMAB-DBLL
     Dosage: 120 MG/ML, QMO, (RIGHT EYE)
     Route: 031
     Dates: start: 20210719
  3. BEOVU [Suspect]
     Active Substance: BROLUCIZUMAB-DBLL
     Dosage: 120 MG/ML, QMO, (RIGHT EYE)
     Route: 031
     Dates: start: 20210907

REACTIONS (6)
  - Iridocyclitis [Recovered/Resolved]
  - Blindness [Unknown]
  - Chorioretinal atrophy [Unknown]
  - Subretinal fibrosis [Unknown]
  - Retinal vascular disorder [Unknown]
  - Retinal perivascular sheathing [Unknown]

NARRATIVE: CASE EVENT DATE: 20210910
